FAERS Safety Report 12506748 (Version 1)
Quarter: 2016Q2

REPORT INFORMATION
  Report Type: Spontaneous
  Country: US (occurrence: US)
  Receive Date: 20160628
  Receipt Date: 20160628
  Transmission Date: 20160815
  Serious: No
  Sender: FDA-Public Use
  Company Number: US-BRACCO-012428

PATIENT
  Age: 52 Year
  Sex: Female

DRUGS (1)
  1. PROHANCE [Suspect]
     Active Substance: GADOTERIDOL
     Indication: NUCLEAR MAGNETIC RESONANCE IMAGING BREAST
     Route: 042
     Dates: start: 20150721, end: 20150721

REACTIONS (2)
  - No adverse event [Recovered/Resolved]
  - Drug effect decreased [Recovered/Resolved]

NARRATIVE: CASE EVENT DATE: 20150721
